FAERS Safety Report 7072240-7 (Version None)
Quarter: 2010Q4

REPORT INFORMATION
  Report Type: 
  Country: None (occurrence: None)
  Receive Date: 20101029
  Receipt Date: 20100112
  Transmission Date: 20110411
  Serious: No
  Sender: FDA-Public Use
  Company Number: A0836857A

PATIENT
  Age: 55 Year
  Sex: Female

DRUGS (3)
  1. ADVAIR DISKUS 100/50 [Suspect]
     Indication: ASTHMA
     Dosage: 1PUFF TWICE PER DAY
     Route: 055
     Dates: start: 20091221
  2. TEGRETOL [Concomitant]
  3. KLONOPIN [Concomitant]

REACTIONS (4)
  - CYSTITIS [None]
  - INSOMNIA [None]
  - POLLAKIURIA [None]
  - VAGINAL SWELLING [None]
